FAERS Safety Report 9639055 (Version 1)
Quarter: 2013Q4

REPORT INFORMATION
  Report Type: Spontaneous
  Country: PT (occurrence: PT)
  Receive Date: 20131022
  Receipt Date: 20131022
  Transmission Date: 20140711
  Serious: Yes (Other)
  Sender: FDA-Public Use
  Company Number: PT-BAYER-2013-124379

PATIENT
  Age: 38 Year
  Sex: Male

DRUGS (2)
  1. ASPIRINA [Suspect]
  2. BRUFEN [Suspect]

REACTIONS (1)
  - Dyspnoea [Recovered/Resolved]
